FAERS Safety Report 17122191 (Version 2)
Quarter: 2020Q1

REPORT INFORMATION
  Report Type: Report from Study
  Country: None (occurrence: US)
  Receive Date: 20191206
  Receipt Date: 20200205
  Transmission Date: 20200409
  Serious: Yes (Other)
  Sender: FDA-Public Use
  Company Number: US-ABBVIE-19K-163-3180536-00

PATIENT
  Age: 55 Year
  Sex: Female
  Weight: 102.15 kg

DRUGS (2)
  1. EXTRA STRENGTH TYLENOL FOR PAIN [Concomitant]
     Indication: PAIN
  2. HUMIRA [Suspect]
     Active Substance: ADALIMUMAB
     Indication: RHEUMATOID ARTHRITIS
     Dosage: HUMIRA CITRATE FREE
     Route: 058

REACTIONS (5)
  - Gingivitis [Not Recovered/Not Resolved]
  - Bone fragmentation [Unknown]
  - Tooth infection [Unknown]
  - Denture wearer [Unknown]
  - Decubitus ulcer [Recovered/Resolved]

NARRATIVE: CASE EVENT DATE: 201911
